FAERS Safety Report 13923640 (Version 2)
Quarter: 2017Q3

REPORT INFORMATION
  Report Type: Spontaneous
  Country: US (occurrence: US)
  Receive Date: 20170831
  Receipt Date: 20170921
  Transmission Date: 20171127
  Serious: Yes (Hospitalization, Other)
  Sender: FDA-Public Use
  Company Number: US-APOTEX-2017AP017388

PATIENT
  Age: 66 Year
  Sex: Male

DRUGS (1)
  1. LITHIUM CARBONATE. [Suspect]
     Active Substance: LITHIUM CARBONATE
     Indication: BIPOLAR DISORDER
     Route: 065

REACTIONS (12)
  - Nervous system disorder [Unknown]
  - Moaning [Unknown]
  - Hyperreflexia [Unknown]
  - Myoclonus [Unknown]
  - Confusional state [Unknown]
  - Toxicity to various agents [Unknown]
  - Agitation [Unknown]
  - Incontinence [Unknown]
  - Lethargy [Unknown]
  - Somnolence [Unknown]
  - Tremor [Unknown]
  - Muscle contractions involuntary [Unknown]
